FAERS Safety Report 8201367-9 (Version None)
Quarter: 2012Q1

REPORT INFORMATION
  Report Type: 
  Country: None (occurrence: None)
  Receive Date: 20120312
  Receipt Date: 20120227
  Transmission Date: 20120608
  Serious: No
  Sender: FDA-Public Use
  Company Number: US-ROXANE LABORATORIES, INC.-2012-RO-00570RO

PATIENT
  Sex: Female

DRUGS (1)
  1. METHADON HCL TAB [Suspect]
     Indication: BACK PAIN
     Dosage: 10 MG
     Route: 048

REACTIONS (2)
  - DRUG SCREEN NEGATIVE [None]
  - BACK PAIN [None]
